FAERS Safety Report 10646199 (Version 1)
Quarter: 2014Q4

REPORT INFORMATION
  Report Type: Spontaneous
  Country: US (occurrence: None)
  Receive Date: 20141202
  Receipt Date: 20141202
  Transmission Date: 20150529
  Serious: No
  Sender: FDA-Public Use
  Company Number: 2013TUS003032

PATIENT
  Sex: Female

DRUGS (2)
  1. ALL OTHER THERPEUTIC PRODUCTS [Concomitant]
  2. NESINA [Suspect]
     Active Substance: ALOGLIPTIN BENZOATE
     Indication: TYPE 2 DIABETES MELLITUS
     Route: 048
     Dates: start: 20131125

REACTIONS (1)
  - Diarrhoea [None]
